FAERS Safety Report 22535528 (Version 2)
Quarter: 2023Q2

REPORT INFORMATION
  Report Type: Spontaneous
  Country: US (occurrence: US)
  Receive Date: 20230608
  Receipt Date: 20230622
  Transmission Date: 20230722
  Serious: Yes (Hospitalization)
  Sender: FDA-Public Use
  Company Number: US-TEVA-2023-US-2893766

PATIENT
  Age: 41 Year
  Sex: Male

DRUGS (2)
  1. GABAPENTIN [Suspect]
     Active Substance: GABAPENTIN
     Indication: Neuralgia
     Dosage: 900 MILLIGRAM DAILY; 300MG THREE TIMES A DAY
     Route: 065
  2. ACETAMINOPHEN [Concomitant]
     Active Substance: ACETAMINOPHEN
     Indication: Product used for unknown indication
     Route: 065

REACTIONS (5)
  - Drug-induced liver injury [Recovering/Resolving]
  - Hyperkalaemia [Unknown]
  - Hyperglycaemia [Unknown]
  - Electrocardiogram T wave peaked [Unknown]
  - Off label use [Unknown]
